FAERS Safety Report 4680436-4 (Version None)
Quarter: 2005Q2

REPORT INFORMATION
  Report Type: 
  Country: None (occurrence: None)
  Receive Date: 20050602
  Receipt Date: 20041206
  Transmission Date: 20051028
  Serious: Yes (Life-Threatening, Hospitalization, Disabling, Other)
  Sender: FDA-Public Use
  Company Number: US-MERCK-0412USA00701

PATIENT
  Age: 68 Year
  Sex: Female

DRUGS (1)
  1. VIOXX [Suspect]
     Indication: RHEUMATOID ARTHRITIS
     Route: 048
     Dates: start: 19990810, end: 20040901

REACTIONS (7)
  - BLOOD PRESSURE FLUCTUATION [None]
  - BRADYCARDIA [None]
  - CARDIAC DISORDER [None]
  - HYPERTENSION [None]
  - LABILE BLOOD PRESSURE [None]
  - SILENT MYOCARDIAL INFARCTION [None]
  - VENTRICULAR DYSFUNCTION [None]
